FAERS Safety Report 25892146 (Version 1)
Quarter: 2025Q4

REPORT INFORMATION
  Report Type: Report from Study
  Country: None (occurrence: EU)
  Receive Date: 20251007
  Receipt Date: 20251007
  Transmission Date: 20260118
  Serious: Yes (Disabling)
  Sender: ALNYLAM PHARMACEUTICALS
  Company Number: EU-ALNYLAM PHARMACEUTICALS, INC.-ALN-2025-006134

PATIENT
  Age: 78 Year

DRUGS (13)
  1. AMVUTTRA [Suspect]
     Active Substance: VUTRISIRAN
     Indication: Hereditary neuropathic amyloidosis
     Dosage: UNK UNK, Q3M (25 MILLIGRAMS PER 0.5 MILLILITER)
  2. Cotareg-palexia [Concomitant]
     Indication: Product used for unknown indication
     Dosage: UNK
     Route: 065
  3. Cotareg-palexia [Concomitant]
     Indication: Product used for unknown indication
     Dosage: UNK
     Route: 065
  4. Norvasc-ASA [Concomitant]
     Indication: Product used for unknown indication
     Dosage: UNK
     Route: 065
  5. Norvasc-ASA [Concomitant]
     Indication: Product used for unknown indication
     Dosage: UNK
     Route: 065
  6. Torvasc-Zyloric [Concomitant]
     Indication: Product used for unknown indication
     Dosage: UNK
     Route: 065
  7. Torvasc-Zyloric [Concomitant]
     Indication: Product used for unknown indication
     Dosage: UNK
     Route: 065
  8. Olevia-Bisoprololo [Concomitant]
     Indication: Product used for unknown indication
     Dosage: UNK
     Route: 065
  9. Olevia-Bisoprololo [Concomitant]
     Indication: Product used for unknown indication
     Dosage: UNK
     Route: 065
  10. Silodosina-lederfolin [Concomitant]
     Indication: Product used for unknown indication
     Dosage: UNK
     Route: 065
  11. Silodosina-lederfolin [Concomitant]
     Indication: Product used for unknown indication
     Dosage: UNK
     Route: 065
  12. avodart-pantorc [Concomitant]
     Indication: Product used for unknown indication
     Dosage: UNK
     Route: 065
  13. avodart-pantorc [Concomitant]
     Indication: Product used for unknown indication
     Dosage: UNK
     Route: 065

REACTIONS (4)
  - Speech disorder [Not Recovered/Not Resolved]
  - Vision blurred [Not Recovered/Not Resolved]
  - Throat irritation [Not Recovered/Not Resolved]
  - Salivary hypersecretion [Not Recovered/Not Resolved]
